FAERS Safety Report 7672558-0 (Version None)
Quarter: 2011Q3

REPORT INFORMATION
  Report Type: 
  Country: None (occurrence: None)
  Receive Date: 20110809
  Receipt Date: 20110802
  Transmission Date: 20111222
  Serious: Yes (Life-Threatening, Hospitalization)
  Sender: FDA-Public Use
  Company Number: US-CELGENEUS-163-21880-11080423

PATIENT
  Sex: Female
  Weight: 66.284 kg

DRUGS (4)
  1. ALKERAN [Suspect]
     Indication: AMYLOIDOSIS
     Dosage: 6 MILLIGRAM
     Route: 048
     Dates: start: 20100801
  2. ASPIRIN [Concomitant]
     Route: 065
  3. REVLIMID [Suspect]
     Indication: AMYLOIDOSIS
     Dosage: 5 MILLIGRAM
     Route: 048
     Dates: start: 20100801
  4. DEXAMETHASONE [Suspect]
     Indication: AMYLOIDOSIS
     Dosage: 20 MILLIGRAM
     Route: 048
     Dates: start: 20100801

REACTIONS (3)
  - PANCYTOPENIA [None]
  - PYREXIA [None]
  - LOWER GASTROINTESTINAL HAEMORRHAGE [None]
